FAERS Safety Report 9518083 (Version 1)
Quarter: 2013Q1

REPORT INFORMATION
  Report Type: Spontaneous
  Country: US (occurrence: None)
  Receive Date: 20130305
  Receipt Date: 20130305
  Transmission Date: 20140127
  Serious: Yes (Other)
  Sender: FDA-Public Use
  Company Number: 163-21880-12063578

PATIENT
  Age: 72 Year
  Sex: Male
  Weight: 69.4 kg

DRUGS (13)
  1. REVLIMID [Suspect]
     Indication: PLASMA CELL MYELOMA
     Dosage: 15 MG, 14 IN 14 D, PO
     Route: 048
     Dates: start: 20120125
  2. ADVAIR (SERETIDE MITE) (UNKNOWN) [Concomitant]
  3. CALCIUM WITH VITAMIN D (CALCIUM WITH VITAMIN D) (UNKNOWN) [Concomitant]
  4. DEXAMETHASONE (DEXAMETHASONE) (UNKNOWN) [Concomitant]
  5. GLUCOSAMINE CHONDROITIN (GLUCOSAMINE W/CHONDROITIN SULFATE) (UNKNOWN) [Concomitant]
  6. IBUPROFEN (IBUPROFEN) (UNKNOWN) [Concomitant]
  7. VALACYCLOVIR (VALACYCLOVIR HYDROCHLORIDE) (UNKNOWN) [Concomitant]
  8. VENTOLIN (SALBUTAMOL) (UNKNOWN) [Concomitant]
  9. ZOMETA (ZOLEDRONIC ACID) (UNKNOWN) [Concomitant]
  10. LOSARTAN (LOSARTAN) (UNKNOWN) [Concomitant]
  11. SPIRIVA (TIOTROPIUM BROMIDE) (UNKNOWN) [Concomitant]
  12. TRICOR (FENOFIBRATE) (UNKNOWN) [Concomitant]
  13. TYLENOL (PARACETAMOL) (UNKNOWN) [Concomitant]

REACTIONS (1)
  - Sensation of heaviness [None]
